FAERS Safety Report 12805022 (Version 5)
Quarter: 2017Q2

REPORT INFORMATION
  Report Type: Report from Study
  Country: JP (occurrence: JP)
  Receive Date: 20161004
  Receipt Date: 20170519
  Transmission Date: 20170830
  Serious: Yes (Hospitalization, Other)
  Sender: FDA-Public Use
  Company Number: JP-ALXN-A201605519AA

PATIENT
  Age: 11 Year
  Sex: Female

DRUGS (16)
  1. PENTASA [Concomitant]
     Active Substance: MESALAMINE
     Indication: DISEASE RECURRENCE
  2. PREDNISOLONE. [Concomitant]
     Active Substance: PREDNISOLONE
     Indication: COLITIS ULCERATIVE
     Dosage: 8 MG, BID
     Route: 048
     Dates: start: 20160725, end: 20160726
  3. PREDNISOLONE. [Concomitant]
     Active Substance: PREDNISOLONE
     Dosage: 3.75 MG, BID
     Route: 048
     Dates: start: 20160824, end: 20160829
  4. CALFINA [Concomitant]
     Active Substance: ALFACALCIDOL
     Indication: HYPOPHOSPHATASIA
     Dosage: 0.5 ?G, QD
     Route: 048
     Dates: start: 20160815, end: 20161108
  5. BAKTAR [Concomitant]
     Active Substance: SULFAMETHOXAZOLE\TRIMETHOPRIM
     Indication: COLITIS ULCERATIVE
     Dosage: 0.5 G, BID
     Route: 048
     Dates: start: 20160716, end: 20160718
  6. FAMOTIDINE. [Concomitant]
     Active Substance: FAMOTIDINE
     Indication: COLITIS ULCERATIVE
     Dosage: 4 MG, BID
     Route: 048
     Dates: start: 20160725, end: 20160814
  7. PREDNISOLONE. [Concomitant]
     Active Substance: PREDNISOLONE
     Dosage: 5 MG, BID
     Route: 048
     Dates: start: 20160808, end: 20160823
  8. PENTASA [Concomitant]
     Active Substance: MESALAMINE
     Indication: DISEASE RECURRENCE
  9. NORDITROPIN [Concomitant]
     Active Substance: SOMATROPIN
     Indication: ADVERSE EVENT
     Dosage: 0.8 MG, QD
     Route: 058
     Dates: start: 20150928, end: 20160426
  10. PENTASA [Concomitant]
     Active Substance: MESALAMINE
     Indication: COLITIS ULCERATIVE
     Dosage: 1 G, QD
     Route: 054
     Dates: start: 20160614, end: 20160628
  11. PREDNISOLONE. [Concomitant]
     Active Substance: PREDNISOLONE
     Dosage: 7.5 MG, QD
     Route: 048
     Dates: start: 20160830, end: 20160906
  12. STRENSIQ [Suspect]
     Active Substance: ASFOTASE ALFA
     Indication: HYPOPHOSPHATASIA
     Dosage: 1 MG/KG, SIX TIMES/WEEK
     Route: 058
     Dates: start: 20160725, end: 20160727
  13. STRENSIQ [Suspect]
     Active Substance: ASFOTASE ALFA
     Dosage: 2 MG/KG, TIW
     Route: 058
     Dates: start: 20160729, end: 20160930
  14. PREDNISOLONE. [Concomitant]
     Active Substance: PREDNISOLONE
     Dosage: 6.25 MG, UNK
     Route: 048
     Dates: start: 20160727, end: 20160807
  15. PENTASA [Concomitant]
     Active Substance: MESALAMINE
     Indication: COLITIS ULCERATIVE
     Dosage: 500 MG, TID
     Route: 048
     Dates: start: 20160602, end: 20160919
  16. VANCOMYCIN [Concomitant]
     Active Substance: VANCOMYCIN
     Indication: COLITIS ULCERATIVE
     Dosage: 0.125 G, QID
     Route: 048
     Dates: start: 20160716, end: 20160729

REACTIONS (7)
  - Colitis ulcerative [Unknown]
  - Hypocalcaemia [Recovered/Resolved]
  - Injection site pain [Recovering/Resolving]
  - Injection site swelling [Recovering/Resolving]
  - Colitis ulcerative [Not Recovered/Not Resolved]
  - Injection site nodule [Recovering/Resolving]
  - Injection site induration [Recovered/Resolved]

NARRATIVE: CASE EVENT DATE: 20160725
